FAERS Safety Report 25618688 (Version 1)
Quarter: 2025Q3

REPORT INFORMATION
  Report Type: Spontaneous
  Country: US (occurrence: US)
  Receive Date: 20250729
  Receipt Date: 20250729
  Transmission Date: 20251021
  Serious: Yes (Other)
  Sender: ROCHE
  Company Number: US-ROCHE-10000345521

PATIENT
  Age: 6 Year
  Sex: Male

DRUGS (1)
  1. XOLAIR [Suspect]
     Active Substance: OMALIZUMAB
     Indication: Product used for unknown indication
     Route: 065

REACTIONS (8)
  - Sneezing [Unknown]
  - Cough [Unknown]
  - Erythema [Unknown]
  - Mouth swelling [Unknown]
  - Mass [Unknown]
  - Dyspnoea [Unknown]
  - Pruritus [Unknown]
  - Feeling hot [Unknown]
